FAERS Safety Report 26006567 (Version 1)
Quarter: 2025Q4

REPORT INFORMATION
  Report Type: Report from Study
  Country: IN (occurrence: IN)
  Receive Date: 20251106
  Receipt Date: 20251106
  Transmission Date: 20260118
  Serious: Yes (Other)
  Sender: ALEXION PHARMACEUTICALS
  Company Number: IN-AstraZeneca-CH-00983971A

PATIENT
  Sex: Female
  Weight: 60 kg

DRUGS (1)
  1. DURVALUMAB [Suspect]
     Active Substance: DURVALUMAB
     Indication: Bladder cancer
     Dosage: 1500 MILLIGRAM, Q3W

REACTIONS (4)
  - Renal abscess [Unknown]
  - Pyrexia [Unknown]
  - Asthenia [Unknown]
  - Alopecia [Unknown]
